FAERS Safety Report 16858955 (Version 1)
Quarter: 2019Q3

REPORT INFORMATION
  Report Type: Spontaneous
  Country: CA (occurrence: CA)
  Receive Date: 20190926
  Receipt Date: 20190926
  Transmission Date: 20191005
  Serious: Yes (Other)
  Sender: FDA-Public Use
  Company Number: CA-CIPHER-2019-CA-002712

PATIENT
  Age: 40 Year
  Sex: Male

DRUGS (9)
  1. TRASTUZUMAB. [Suspect]
     Active Substance: TRASTUZUMAB
     Indication: BREAST CANCER METASTATIC
     Route: 042
  2. ACETAMINOPHEN. [Concomitant]
     Active Substance: ACETAMINOPHEN
     Indication: PRODUCT USED FOR UNKNOWN INDICATION
  3. DILAUDID [Suspect]
     Active Substance: HYDROMORPHONE HYDROCHLORIDE
     Indication: PRODUCT USED FOR UNKNOWN INDICATION
  4. XELODA [Suspect]
     Active Substance: CAPECITABINE
     Indication: BREAST CANCER METASTATIC
     Route: 048
  5. KADCYLA [Suspect]
     Active Substance: ADO-TRASTUZUMAB EMTANSINE
     Indication: BREAST CANCER METASTATIC
     Route: 042
  6. TRAMADOL HYDROCHLORIDE. [Suspect]
     Active Substance: TRAMADOL HYDROCHLORIDE
     Indication: PRODUCT USED FOR UNKNOWN INDICATION
  7. PERJETA [Suspect]
     Active Substance: PERTUZUMAB
     Indication: HER-2 POSITIVE BREAST CANCER
     Route: 042
  8. PANTOPRAZOLE [Concomitant]
     Active Substance: PANTOPRAZOLE
     Indication: PRODUCT USED FOR UNKNOWN INDICATION
  9. MORPHINE [Suspect]
     Active Substance: MORPHINE
     Indication: PRODUCT USED FOR UNKNOWN INDICATION

REACTIONS (18)
  - Nausea [Unknown]
  - Pain [Unknown]
  - Weight decreased [Unknown]
  - Weight increased [Unknown]
  - Haemorrhoids [Unknown]
  - Lymphoedema [Unknown]
  - Pyrexia [Unknown]
  - Tooth disorder [Unknown]
  - Brain neoplasm [Unknown]
  - Constipation [Unknown]
  - Infusion related reaction [Unknown]
  - Fatigue [Unknown]
  - Nasopharyngitis [Unknown]
  - Paranasal sinus discomfort [Unknown]
  - Urinary tract disorder [Unknown]
  - Incorrect dose administered [Unknown]
  - Seizure [Unknown]
  - Blood pressure decreased [Unknown]
